FAERS Safety Report 21550155 (Version 3)
Quarter: 2023Q1

REPORT INFORMATION
  Report Type: Spontaneous
  Country: CA (occurrence: CA)
  Receive Date: 20221103
  Receipt Date: 20230128
  Transmission Date: 20230417
  Serious: Yes (Hospitalization, Other)
  Sender: FDA-Public Use
  Company Number: CA-ASPEN-GLO2021CA000077

PATIENT
  Age: 50 Year
  Sex: Female

DRUGS (46)
  1. ERELZI [Interacting]
     Active Substance: ETANERCEPT-SZZS
     Indication: Complex regional pain syndrome
     Dosage: UNK
     Route: 065
  2. MEMANTINE HYDROCHLORIDE [Interacting]
     Active Substance: MEMANTINE HYDROCHLORIDE
     Indication: Complex regional pain syndrome
     Dosage: UNK
     Route: 065
  3. DILTIAZEM HYDROCHLORIDE [Interacting]
     Active Substance: DILTIAZEM HYDROCHLORIDE
     Indication: Complex regional pain syndrome
     Dosage: UNK
     Route: 065
  4. METOPROLOL [Interacting]
     Active Substance: METOPROLOL
     Indication: Product used for unknown indication
     Dosage: UNK
     Route: 065
  5. PREGABALIN [Interacting]
     Active Substance: PREGABALIN
     Indication: Complex regional pain syndrome
     Dosage: UNK
     Route: 065
  6. MYCOPHENOLATE MOFETIL [Interacting]
     Active Substance: MYCOPHENOLATE MOFETIL
     Indication: Complex regional pain syndrome
     Dosage: UNK
     Route: 065
  7. MONTELUKAST [Interacting]
     Active Substance: MONTELUKAST SODIUM
     Indication: Complex regional pain syndrome
     Dosage: UNK
     Route: 065
  8. KETAMINE [Interacting]
     Active Substance: KETAMINE
     Indication: Complex regional pain syndrome
     Dosage: UNK
     Route: 061
  9. KETAMINE [Interacting]
     Active Substance: KETAMINE
     Dosage: UNK
     Route: 048
  10. KETAMINE [Interacting]
     Active Substance: KETAMINE
     Dosage: UNK
     Route: 042
  11. CLONIDINE [Interacting]
     Active Substance: CLONIDINE
     Indication: Complex regional pain syndrome
     Dosage: UNK
     Route: 065
  12. ACETYLCYSTEINE [Suspect]
     Active Substance: ACETYLCYSTEINE
     Indication: Complex regional pain syndrome
     Dosage: UNK
     Route: 065
  13. LIDOCAINE HYDROCHLORIDE [Interacting]
     Active Substance: LIDOCAINE HYDROCHLORIDE
     Indication: Complex regional pain syndrome
     Dosage: UNK
     Route: 042
  14. LIDOCAINE HYDROCHLORIDE [Interacting]
     Active Substance: LIDOCAINE HYDROCHLORIDE
     Dosage: OINTMENT TOPICAL
     Route: 061
  15. AMITRIPTYLINE HYDROCHLORIDE [Interacting]
     Active Substance: AMITRIPTYLINE HYDROCHLORIDE
     Indication: Complex regional pain syndrome
     Dosage: UNK
     Route: 065
  16. AMLODIPINE BESYLATE [Interacting]
     Active Substance: AMLODIPINE BESYLATE
     Indication: Complex regional pain syndrome
     Dosage: UNK
     Route: 065
  17. ANAKINRA [Interacting]
     Active Substance: ANAKINRA
     Indication: Complex regional pain syndrome
     Dosage: UNK
     Route: 065
  18. APREMILAST [Interacting]
     Active Substance: APREMILAST
     Indication: Complex regional pain syndrome
     Dosage: UNK
     Route: 065
  19. BUMETANIDE [Interacting]
     Active Substance: BUMETANIDE
     Indication: Complex regional pain syndrome
     Dosage: UNK
     Route: 065
  20. CAPSAICIN [Interacting]
     Active Substance: CAPSAICIN
     Indication: Complex regional pain syndrome
     Dosage: UNK
     Route: 061
  21. CIMETIDINE [Interacting]
     Active Substance: CIMETIDINE
     Indication: Complex regional pain syndrome
     Dosage: UNK
     Route: 065
  22. HYDROXYCHLOROQUINE SULFATE [Interacting]
     Active Substance: HYDROXYCHLOROQUINE SULFATE
     Indication: Complex regional pain syndrome
     Dosage: UNK
     Route: 065
  23. IBUDILAST [Interacting]
     Active Substance: IBUDILAST
     Indication: Complex regional pain syndrome
     Dosage: UNK
     Route: 065
  24. LITHIUM CARBONATE [Interacting]
     Active Substance: LITHIUM CARBONATE
     Indication: Complex regional pain syndrome
     Dosage: UNK
     Route: 065
  25. MAGNESIUM GLUCONATE [Interacting]
     Active Substance: MAGNESIUM GLUCONATE
     Indication: Complex regional pain syndrome
     Dosage: UNK
     Route: 065
  26. MAGNESIUM GLUCONATE [Interacting]
     Active Substance: MAGNESIUM GLUCONATE
     Indication: Migraine prophylaxis
  27. MEXILETINE [Interacting]
     Active Substance: MEXILETINE
     Indication: Complex regional pain syndrome
     Dosage: UNK
     Route: 065
  28. ACETYLCYSTEINE [Interacting]
     Active Substance: ACETYLCYSTEINE
     Indication: Complex regional pain syndrome
     Dosage: UNK
     Route: 065
  29. NALTREXONE HYDROCHLORIDE [Interacting]
     Active Substance: NALTREXONE HYDROCHLORIDE
     Indication: Complex regional pain syndrome
     Dosage: 4.5 MG, QD
     Route: 065
  30. NALTREXONE HYDROCHLORIDE [Interacting]
     Active Substance: NALTREXONE HYDROCHLORIDE
     Dosage: 4.5 MG
     Route: 065
  31. PALMIDROL [Interacting]
     Active Substance: PALMIDROL
     Indication: Complex regional pain syndrome
     Dosage: UNK
     Route: 065
  32. PENTOXIFYLLINE [Interacting]
     Active Substance: PENTOXIFYLLINE
     Indication: Complex regional pain syndrome
     Dosage: UNK
     Route: 065
  33. PREDNISONE [Interacting]
     Active Substance: PREDNISONE
     Indication: Complex regional pain syndrome
     Dosage: 85 MG, QD
     Route: 065
  34. PREDNISONE [Interacting]
     Active Substance: PREDNISONE
     Dosage: 13 MG, QD
     Route: 065
  35. PREDNISONE [Interacting]
     Active Substance: PREDNISONE
     Dosage: 5 MG, QD
     Route: 065
  36. PREDNISONE [Interacting]
     Active Substance: PREDNISONE
     Dosage: 95 MG, QD
     Route: 065
  37. PREDNISONE [Interacting]
     Active Substance: PREDNISONE
     Dosage: 1 DOSAGE FORM, QD
     Route: 065
  38. SPIRONOLACTONE [Interacting]
     Active Substance: SPIRONOLACTONE
     Indication: Complex regional pain syndrome
     Dosage: UNK
     Route: 065
  39. VITAMIN B2 [Interacting]
     Active Substance: RIBOFLAVIN
     Indication: Complex regional pain syndrome
     Dosage: UNK
     Route: 065
  40. VITAMIN B2 [Interacting]
     Active Substance: RIBOFLAVIN
     Indication: Migraine prophylaxis
  41. VITAMIN C [Interacting]
     Active Substance: ASCORBIC ACID
     Indication: Complex regional pain syndrome
     Dosage: UNK
     Route: 065
  42. RIBOFLAVIN [Suspect]
     Active Substance: RIBOFLAVIN
     Indication: Complex regional pain syndrome
     Dosage: UNK (CAPSULE)
     Route: 065
  43. RIBOFLAVIN [Suspect]
     Active Substance: RIBOFLAVIN
     Indication: Migraine prophylaxis
     Dosage: UNK
     Route: 065
  44. CALCITONIN [Concomitant]
     Active Substance: CALCITONIN
     Indication: Complex regional pain syndrome
     Dosage: UNK
     Route: 065
  45. EZETIMIBE [Concomitant]
     Active Substance: EZETIMIBE
     Indication: Product used for unknown indication
     Dosage: UNK
     Route: 065
  46. ANAKINRA [Concomitant]
     Active Substance: ANAKINRA
     Indication: Product used for unknown indication
     Dosage: 100 MG
     Route: 058

REACTIONS (20)
  - Body tinea [Recovered/Resolved]
  - Bone density decreased [Recovered/Resolved]
  - Cataract [Recovered/Resolved]
  - Contusion [Recovered/Resolved]
  - Glucose tolerance impaired [Recovered/Resolved]
  - Herpes zoster [Recovered/Resolved]
  - Hyperlipidaemia [Recovered/Resolved]
  - Infection susceptibility increased [Recovered/Resolved]
  - Insomnia [Recovered/Resolved]
  - Oral herpes [Recovered/Resolved]
  - Poor quality sleep [Recovered/Resolved]
  - Purpura [Recovered/Resolved]
  - Skin disorder [Recovered/Resolved]
  - Weight decreased [Recovered/Resolved]
  - Inhibitory drug interaction [Unknown]
  - Cellulitis [Recovered/Resolved]
  - Fatigue [Recovered/Resolved]
  - Hypertension [Recovered/Resolved]
  - Weight increased [Recovered/Resolved]
  - Drug ineffective [Unknown]
